FAERS Safety Report 14737548 (Version 1)
Quarter: 2018Q2

REPORT INFORMATION
  Report Type: Spontaneous
  Country: US (occurrence: US)
  Receive Date: 20180404
  Receipt Date: 20180404
  Transmission Date: 20180711
  Serious: No
  Sender: FDA-Public Use
  Company Number: None

PATIENT
  Age: 26 Year
  Sex: Female
  Weight: 58.97 kg

DRUGS (2)
  1. MIRENA [Suspect]
     Active Substance: LEVONORGESTREL
     Indication: CONTRACEPTION
     Dosage: ?          QUANTITY:1 DEVICE;?
  2. QUESENSE [Concomitant]
     Dates: start: 20180116, end: 20180228

REACTIONS (1)
  - Device dislocation [None]

NARRATIVE: CASE EVENT DATE: 20180228
